FAERS Safety Report 18612123 (Version 1)
Quarter: 2020Q4

REPORT INFORMATION
  Report Type: Spontaneous
  Country: JP (occurrence: JP)
  Receive Date: 20201214
  Receipt Date: 20201214
  Transmission Date: 20210114
  Serious: Yes (Other)
  Sender: FDA-Public Use
  Company Number: JP-GUERBET-JP-20200209

PATIENT
  Age: 48 Year
  Sex: Female

DRUGS (4)
  1. LIPIODOL [Suspect]
     Active Substance: ETHIODIZED OIL
     Indication: THERAPEUTIC EMBOLISATION
     Dosage: 25% MIXTURE OF NBCA AND LIPIODOL
     Route: 013
  2. HISTOACRYL [Concomitant]
     Active Substance: ENBUCRILATE
     Indication: THERAPEUTIC EMBOLISATION
     Dosage: 25% MIXTURE OF NBCA AND LIPIODOL
     Route: 013
  3. LIPIODOL [Suspect]
     Active Substance: ETHIODIZED OIL
     Indication: THERAPEUTIC EMBOLISATION
     Dosage: 25% MIXTURE OF  NBCA AND LIPIODOL
     Route: 013
  4. HISTOACRYL [Concomitant]
     Active Substance: ENBUCRILATE
     Indication: THERAPEUTIC EMBOLISATION
     Dosage: 25% MIXTURE OF NBCA AND LIPIODOL
     Route: 013

REACTIONS (5)
  - Product use in unapproved indication [Unknown]
  - Cerebral infarction [Unknown]
  - Brain oedema [Recovered/Resolved]
  - Quadrantanopia [Not Recovered/Not Resolved]
  - Hemiparesis [Recovered/Resolved]
